FAERS Safety Report 17492364 (Version 1)
Quarter: 2020Q1

REPORT INFORMATION
  Report Type: Spontaneous
  Country: CA (occurrence: CA)
  Receive Date: 20200304
  Receipt Date: 20200304
  Transmission Date: 20200409
  Serious: Yes (Other)
  Sender: FDA-Public Use
  Company Number: CA-TEVA-2020-CA-1192334

PATIENT
  Age: 64 Year
  Sex: Female
  Weight: 72 kg

DRUGS (3)
  1. GABAPENTIN. [Suspect]
     Active Substance: GABAPENTIN
     Indication: NEURALGIA
     Dosage: 900 MILLIGRAM DAILY;
     Route: 048
  2. HYDROMORPHONE HCL INJ USP [Concomitant]
     Active Substance: HYDROMORPHONE HYDROCHLORIDE
  3. TYLENOL [Concomitant]
     Active Substance: ACETAMINOPHEN

REACTIONS (10)
  - Paraesthesia [Unknown]
  - Limb discomfort [Unknown]
  - Balance disorder [Unknown]
  - Drug withdrawal syndrome [Unknown]
  - Vision blurred [Unknown]
  - Anxiety [Unknown]
  - Depression [Unknown]
  - Hypoaesthesia [Unknown]
  - Dizziness [Unknown]
  - Tinnitus [Unknown]
